FAERS Safety Report 10551359 (Version 1)
Quarter: 2014Q4

REPORT INFORMATION
  Report Type: Spontaneous
  Country: US (occurrence: US)
  Receive Date: 20141029
  Receipt Date: 20141029
  Transmission Date: 20150529
  Serious: Yes (Other)
  Sender: FDA-Public Use
  Company Number: US-ROCHE-1478196

PATIENT

DRUGS (4)
  1. KLONOPIN [Suspect]
     Active Substance: CLONAZEPAM
     Indication: EPILEPSY
     Route: 065
  2. KEPPRA [Suspect]
     Active Substance: LEVETIRACETAM
     Indication: EPILEPSY
     Route: 065
  3. LAMICTAL [Suspect]
     Active Substance: LAMOTRIGINE
     Indication: EPILEPSY
     Route: 065
  4. ZONEGRAN [Suspect]
     Active Substance: ZONISAMIDE
     Indication: EPILEPSY
     Route: 065

REACTIONS (11)
  - Status epilepticus [Unknown]
  - Weight increased [Unknown]
  - Anticonvulsant drug level increased [Unknown]
  - Generalised tonic-clonic seizure [Unknown]
  - Balance disorder [Unknown]
  - Asthenia [Unknown]
  - Hypotonia [Unknown]
  - Decreased appetite [Unknown]
  - Lethargy [Unknown]
  - Complex partial seizures [Unknown]
  - Mental impairment [Unknown]
